FAERS Safety Report 7279011-7 (Version None)
Quarter: 2011Q1

REPORT INFORMATION
  Report Type: 
  Country: None (occurrence: None)
  Receive Date: 20110207
  Receipt Date: 20110126
  Transmission Date: 20110831
  Serious: Yes (Other)
  Sender: FDA-Public Use
  Company Number: PHHY2011NL06327

PATIENT
  Sex: Male

DRUGS (2)
  1. SODIUM CHLORIDE [Concomitant]
     Dosage: 100 ML
  2. ZOMETA [Suspect]
     Indication: PROSTATE CANCER METASTATIC
     Dosage: UNK
     Route: 042
     Dates: start: 20080515, end: 20110126

REACTIONS (5)
  - DYSPNOEA [None]
  - CACHEXIA [None]
  - HYPOKINESIA [None]
  - GENERAL PHYSICAL HEALTH DETERIORATION [None]
  - FEELING ABNORMAL [None]
